FAERS Safety Report 6359949-5 (Version None)
Quarter: 2009Q3

REPORT INFORMATION
  Report Type: 
  Country: None (occurrence: None)
  Receive Date: 20090917
  Receipt Date: 20090908
  Transmission Date: 20100115
  Serious: Yes (Other)
  Sender: FDA-Public Use
  Company Number: US-PFIZER INC-2009266947

PATIENT
  Sex: Female

DRUGS (15)
  1. PROVERA [Suspect]
     Indication: HORMONE REPLACEMENT THERAPY
     Dosage: 2.5 MG, UNK
     Route: 048
     Dates: start: 19951001, end: 19951101
  2. PROVERA [Suspect]
     Dosage: 2.5 MG, UNK
     Route: 048
     Dates: start: 19960801, end: 19980701
  3. PROVERA [Suspect]
     Dosage: 10 MG, UNK
     Route: 048
     Dates: start: 19980101
  4. PREMARIN [Suspect]
     Indication: HORMONE REPLACEMENT THERAPY
     Dosage: 1.25 MG, UNK
     Dates: start: 19951001, end: 19951101
  5. PREMARIN [Suspect]
     Dosage: 1.25 MG, UNK
     Dates: start: 19960701, end: 19980701
  6. PREMARIN [Suspect]
     Dosage: 2.5 MG, UNK
     Dates: start: 19960101
  7. PREMPRO [Suspect]
     Indication: HORMONE REPLACEMENT THERAPY
     Dosage: UNK
     Dates: start: 19950801, end: 19951001
  8. PREMPHASE 14/14 [Suspect]
     Indication: HORMONE REPLACEMENT THERAPY
     Dosage: UNK
     Dates: start: 19951101, end: 19960801
  9. ESTRATEST [Suspect]
     Indication: HORMONE REPLACEMENT THERAPY
  10. ESTROGENS [Suspect]
     Indication: HORMONE REPLACEMENT THERAPY
  11. MEDROXYPROGESTERONE ACETATE [Suspect]
     Indication: HORMONE REPLACEMENT THERAPY
  12. CYCRIN [Suspect]
     Indication: HORMONE REPLACEMENT THERAPY
     Dosage: 2.5 MG, UNK
  13. CYCRIN [Suspect]
     Dosage: 10 MG, UNK
  14. ESTRACE [Suspect]
     Indication: HORMONE REPLACEMENT THERAPY
  15. PREMARIN [Suspect]
     Indication: HORMONE REPLACEMENT THERAPY

REACTIONS (1)
  - BREAST CANCER [None]
